FAERS Safety Report 6184987-5 (Version None)
Quarter: 2009Q2

REPORT INFORMATION
  Report Type: 
  Country: None (occurrence: None)
  Receive Date: 20090511
  Receipt Date: 20090306
  Transmission Date: 20091009
  Serious: No
  Sender: FDA-Public Use
  Company Number: A0772102A

PATIENT
  Age: 74 Year
  Sex: Female

DRUGS (7)
  1. COREG CR [Suspect]
     Indication: HYPERTENSION
     Dosage: 20MG PER DAY
     Route: 048
     Dates: start: 20080301
  2. PROTONIX [Concomitant]
  3. FUROSEMIDE [Concomitant]
  4. THYROID TAB [Concomitant]
  5. CRESTOR [Concomitant]
  6. VITAMIN E [Concomitant]
  7. ASPIRIN [Concomitant]

REACTIONS (5)
  - ASTHENIA [None]
  - COUGH [None]
  - DYSPNOEA [None]
  - FATIGUE [None]
  - SOMNOLENCE [None]
